FAERS Safety Report 4902358-3 (Version None)
Quarter: 2006Q1

REPORT INFORMATION
  Report Type: 
  Country: None (occurrence: None)
  Receive Date: 20060202
  Receipt Date: 20060202
  Transmission Date: 20060701
  Serious: Yes (Hospitalization)
  Sender: FDA-Public Use
  Company Number: None

PATIENT
  Age: 59 Year
  Sex: Female
  Weight: 53.5244 kg

DRUGS (16)
  1. TAXOTERE [Suspect]
     Indication: BREAST CANCER METASTATIC
     Dosage: 75MG/M2 Q3W IV
     Route: 042
     Dates: start: 20051011, end: 20060103
  2. BEVACIZUMAB 15 MG/KG - GENENTECH [Suspect]
     Indication: BREAST CANCER METASTATIC
     Dosage: 15 MG/KG Q 3 WK IV
     Route: 042
     Dates: start: 20051011, end: 20060103
  3. KLOR-CON [Concomitant]
  4. TOPROL-XL [Concomitant]
  5. DIOVAN HCT [Concomitant]
  6. MVT [Concomitant]
  7. TYLENOL [Concomitant]
  8. ECHINACEA [Concomitant]
  9. VITAMIN E [Concomitant]
  10. OSCAL [Concomitant]
  11. VITAMIN B-12 [Concomitant]
  12. ZOMETA [Concomitant]
  13. NEULASTA [Concomitant]
  14. SENOKOT [Concomitant]
  15. ALOXI [Concomitant]
  16. DECADRON SRC [Concomitant]

REACTIONS (3)
  - HAEMATOCHEZIA [None]
  - VOMITING [None]
  - VOMITING PROJECTILE [None]
